FAERS Safety Report 17424024 (Version 2)
Quarter: 2020Q2

REPORT INFORMATION
  Report Type: Other
  Country: AT (occurrence: AT)
  Receive Date: 20200217
  Receipt Date: 20200407
  Transmission Date: 20200713
  Serious: Yes (Other)
  Sender: FDA-Public Use
  Company Number: AT-CELLTRION INC.-2020AT018943

PATIENT

DRUGS (39)
  1. TAXOTERE [Suspect]
     Active Substance: DOCETAXEL
     Dosage: MOST RECENT DOSE PRIOR TO THE EVENT ON 17/OCT/2018
     Route: 042
     Dates: start: 20180608
  2. ARIMIDEX [Suspect]
     Active Substance: ANASTROZOLE
     Dosage: 1 MG, QD (MOST RECENT DOSE OF ANASTROZOLE ON 14/MAY/2018)
     Route: 048
     Dates: start: 20170324
  3. CONCOR [Concomitant]
     Active Substance: BISOPROLOL FUMARATE
     Indication: HYPERTENSION
     Dosage: UNK
     Route: 065
     Dates: start: 20180814, end: 20191007
  4. CONCOR [Concomitant]
     Active Substance: BISOPROLOL FUMARATE
     Indication: HYPERTENSION
     Dosage: UNK
     Dates: start: 20171213, end: 20180715
  5. TRITAZIDE [Concomitant]
     Active Substance: HYDROCHLOROTHIAZIDE\RAMIPRIL
     Dosage: UNK
     Route: 065
  6. LOVENOX [Concomitant]
     Active Substance: ENOXAPARIN SODIUM
     Indication: DYSPNOEA EXERTIONAL
     Dosage: ONGOING = NOT CHECKED
     Dates: start: 20180615, end: 20180713
  7. NOVALGIN (METAMIZOLE SODIUM) [Concomitant]
     Active Substance: METAMIZOLE SODIUM
     Indication: PAIN
     Dosage: UNK
     Route: 065
     Dates: start: 20180715
  8. FASLODEX [Suspect]
     Active Substance: FULVESTRANT
     Dosage: MOST RECENT DOSE ON 26/DEC/2018
     Route: 030
     Dates: start: 20181128
  9. TAXOTERE [Suspect]
     Active Substance: DOCETAXEL
     Dosage: 132.78 MG
     Route: 042
     Dates: start: 20180926
  10. XGEVA [Concomitant]
     Active Substance: DENOSUMAB
     Dosage: UNK
     Route: 065
     Dates: start: 20181017
  11. TORASEMIDE [Concomitant]
     Active Substance: TORSEMIDE
     Indication: HYPERTENSION
     Dosage: UNK
  12. CAL D VITA [Concomitant]
     Dosage: UNK
     Route: 065
     Dates: start: 20170505, end: 20190615
  13. ULSAL [Concomitant]
     Active Substance: RANITIDINE HYDROCHLORIDE
     Dosage: UNK
     Dates: start: 20170414, end: 20191119
  14. ACETYLSALICYLIC ACID [Concomitant]
     Active Substance: ASPIRIN
     Indication: HYPERTENSION
  15. MOLAXOLE [Concomitant]
     Active Substance: POLYETHYLENE GLYCOL 3350\POTASSIUM CHLORIDE\SODIUM BICARBONATE\SODIUM CHLORIDE
     Indication: DYSPNOEA EXERTIONAL
  16. MEXALEN [Concomitant]
     Active Substance: ACETAMINOPHEN
     Indication: DYSPNOEA EXERTIONAL
     Dosage: UNK
     Dates: start: 20180715
  17. FORTECORTIN [DEXAMETHASONE] [Concomitant]
     Active Substance: DEXAMETHASONE
     Dosage: UNK
     Dates: start: 20180723
  18. MEROPENEM. [Concomitant]
     Active Substance: MEROPENEM
     Indication: DYSPNOEA EXERTIONAL
     Dosage: ONGOING = NOT CHECKED
     Dates: start: 20180705, end: 20180712
  19. PERTUZUMAB. [Suspect]
     Active Substance: PERTUZUMAB
     Dosage: 840 MG EVERY 3 WEEKS
     Route: 042
     Dates: start: 20170324, end: 20170324
  20. TAXOTERE [Suspect]
     Active Substance: DOCETAXEL
     Dosage: MOST RECENT DOSE PRIOR TO THE EVENT ON 17/OCT/2018
     Route: 042
     Dates: start: 20180608
  21. MEXALEN [Concomitant]
     Active Substance: ACETAMINOPHEN
     Indication: DYSPNOEA EXERTIONAL
  22. KYTRIL [Concomitant]
     Active Substance: GRANISETRON HYDROCHLORIDE
     Dosage: UNK
     Route: 065
     Dates: start: 20180608, end: 20181017
  23. CORTISON [Concomitant]
     Active Substance: CORTISONE ACETATE
     Dosage: UNK
     Dates: start: 20180608, end: 20180608
  24. FOSTER [Concomitant]
     Active Substance: BECLOMETHASONE\FORMOTEROL
     Indication: DYSPNOEA
     Dosage: UNK
     Dates: start: 20171120
  25. FENISTIL [Concomitant]
     Active Substance: DIMETHINDENE
     Dosage: UNK
     Dates: start: 20170414
  26. AVELOX [Concomitant]
     Active Substance: MOXIFLOXACIN HYDROCHLORIDE
     Indication: DYSPNOEA EXERTIONAL
  27. TRASTUZUMAB (UNKNOWN) [Suspect]
     Active Substance: TRASTUZUMAB
     Dosage: MOST RECENT DOSE PRIOR TO THE EVENT: 07/NOV/2018
     Route: 042
     Dates: start: 20170324
  28. TORASEMIDE [Concomitant]
     Active Substance: TORSEMIDE
     Indication: DYSPNOEA EXERTIONAL
     Dosage: UNK
     Dates: start: 20180214, end: 20190615
  29. MOLAXOLE [Concomitant]
     Active Substance: POLYETHYLENE GLYCOL 3350\POTASSIUM CHLORIDE\SODIUM BICARBONATE\SODIUM CHLORIDE
     Indication: DYSPNOEA EXERTIONAL
     Dosage: UNK
     Route: 065
     Dates: start: 20180715
  30. PERTUZUMAB. [Suspect]
     Active Substance: PERTUZUMAB
     Dosage: 420 MG EVERY 3 WEEKS (MOST RECENT DOSE PRIOR TO THE EVENT)
     Route: 042
     Dates: start: 20180723
  31. TORASEMIDE [Concomitant]
     Active Substance: TORSEMIDE
     Indication: HYPERTENSION
  32. FORTECORTIN [DEXAMETHASONE] [Concomitant]
     Active Substance: DEXAMETHASONE
     Dosage: UNK
     Dates: start: 20181017
  33. DEXABENE [Concomitant]
     Dosage: UNK
     Dates: start: 20181107
  34. ACETYLSALICYLIC ACID [Concomitant]
     Active Substance: ASPIRIN
     Indication: HYPERTENSION
     Dosage: UNK
     Dates: start: 20171120, end: 20190615
  35. AVELOX [Concomitant]
     Active Substance: MOXIFLOXACIN HYDROCHLORIDE
     Indication: DYSPNOEA EXERTIONAL
     Dosage: UNK
     Route: 065
     Dates: start: 20180712, end: 20180722
  36. VIBRAMYCIN [Concomitant]
     Active Substance: DOXYCYCLINE
     Indication: SINUSITIS
     Dosage: ONGOING = NOT CHECKED
     Dates: start: 20180417, end: 20180615
  37. TAXOTERE [Suspect]
     Active Substance: DOCETAXEL
     Dosage: 132.78 MG
     Route: 042
     Dates: start: 20180926
  38. NOVALGIN (METAMIZOLE SODIUM) [Concomitant]
     Active Substance: METAMIZOLE SODIUM
     Indication: DYSPNOEA EXERTIONAL
     Dosage: UNK
  39. PANTOPRAZOL [PANTOPRAZOLE] [Concomitant]
     Active Substance: PANTOPRAZOLE
     Dosage: UNK
     Route: 065

REACTIONS (4)
  - Dysgeusia [Recovered/Resolved]
  - Polyneuropathy [Not Recovered/Not Resolved]
  - Fatigue [Recovered/Resolved]
  - Pain [Recovered/Resolved]

NARRATIVE: CASE EVENT DATE: 20180702
